FAERS Safety Report 6199729-7 (Version None)
Quarter: 2009Q2

REPORT INFORMATION
  Report Type: 
  Country: None (occurrence: None)
  Receive Date: 20090522
  Receipt Date: 20080123
  Transmission Date: 20091009
  Serious: Yes (Death, Hospitalization, Other)
  Sender: FDA-Public Use
  Company Number: US-ALEXION-A200700065

PATIENT
  Sex: Male
  Weight: 98.866 kg

DRUGS (32)
  1. SOLIRIS [Suspect]
     Indication: PAROXYSMAL NOCTURNAL HAEMOGLOBINURIA
     Dosage: 600 MG, SINGLE
     Route: 042
     Dates: start: 20070430, end: 20070430
  2. SOLIRIS [Suspect]
     Dosage: 600 MG, SINGLE
     Route: 042
     Dates: start: 20070507, end: 20070507
  3. SOLIRIS [Suspect]
     Dosage: 600 MG, SINGLE
     Route: 042
     Dates: start: 20070514, end: 20070514
  4. SOLIRIS [Suspect]
     Dosage: 600 MG, SINGLE
     Route: 042
     Dates: start: 20070521, end: 20070521
  5. SOLIRIS [Suspect]
     Dosage: 900 MG, SINGLE
     Route: 042
     Dates: start: 20070528, end: 20070528
  6. SOLIRIS [Suspect]
     Dosage: 900 MG, SINGLE
     Route: 042
     Dates: start: 20070611, end: 20070611
  7. SOLIRIS [Suspect]
     Dosage: 900 MG, SINGLE
     Route: 042
     Dates: start: 20070625, end: 20070625
  8. SOLIRIS [Suspect]
     Dosage: 900 MG, SINGLE
     Route: 042
     Dates: start: 20070709, end: 20070709
  9. SOLIRIS [Suspect]
     Dosage: 900 MG, SINGLE
     Route: 042
     Dates: start: 20070714, end: 20070714
  10. SOLIRIS [Suspect]
     Dosage: 900 MG, SINGLE
     Route: 042
     Dates: start: 20070730, end: 20070730
  11. PREDNISONE [Concomitant]
     Dosage: UNK, UNK
  12. PREDNISONE [Concomitant]
     Dosage: 40 MG, QOD
  13. BACTRIM [Concomitant]
     Dosage: 1 TABLET EVERY WEDNESDAY AND FRIDAY
     Route: 048
  14. SYNTHROID [Concomitant]
  15. LIPITOR [Concomitant]
     Dosage: 20 MG, QD, HS
     Route: 048
  16. NEXIUM [Concomitant]
     Dosage: 20 MG, QD
     Route: 048
  17. ACTONEL [Concomitant]
     Dosage: 35 MG, QW
     Route: 048
  18. TOPROL-XL [Concomitant]
  19. FLOMAX [Concomitant]
     Dosage: 0.4 MG, QD AFTER EVENING MEAL
  20. ANDROGEL [Concomitant]
  21. QUINIDINE SULFATE [Concomitant]
     Indication: MUSCLE SPASMS
     Dosage: 325 MG, QD, PRN
  22. ALPHAGAN [Concomitant]
  23. TYLENOL W/ CODEINE NO. 3 [Concomitant]
     Dosage: 1 TABLET, Q12H, PRN
  24. TYLENOL W/ CODEINE NO. 3 [Concomitant]
     Dosage: 15 MG, QD
     Route: 048
  25. TYLENOL W/ CODEINE NO. 3 [Concomitant]
     Route: 048
  26. LEXAPRO [Concomitant]
  27. LEXAPRO [Concomitant]
     Dosage: 15 MG, QD
     Route: 048
  28. LISINOPRIL [Concomitant]
     Dosage: 2.5 MG, QD
     Route: 048
  29. FERROUS SULFATE TAB [Concomitant]
     Dosage: 325 MG, BID
     Route: 048
  30. CITRACAL + D /01438101/ [Concomitant]
  31. FOLIC ACID [Concomitant]
     Dosage: 1 MG, QD
     Route: 048
  32. TYLENOL (CAPLET) [Concomitant]
     Indication: PAIN
     Dosage: 1000 MG, Q6H, PRN

REACTIONS (12)
  - ATRIAL FIBRILLATION [None]
  - CELLULITIS [None]
  - DEHYDRATION [None]
  - DRUG INEFFECTIVE [None]
  - DYSPNOEA [None]
  - HYPERKALAEMIA [None]
  - HYPONATRAEMIA [None]
  - MENTAL STATUS CHANGES [None]
  - MULTI-ORGAN FAILURE [None]
  - RENAL FAILURE ACUTE [None]
  - SEPSIS [None]
  - URINARY TRACT INFECTION [None]
